FAERS Safety Report 7371871-4 (Version None)
Quarter: 2011Q1

REPORT INFORMATION
  Report Type: 
  Country: None (occurrence: None)
  Receive Date: 20110310
  Receipt Date: 20110221
  Transmission Date: 20110831
  Serious: Yes (Hospitalization, Other)
  Sender: FDA-Public Use
  Company Number: 2011SP008440

PATIENT
  Age: 23 Year
  Sex: Female

DRUGS (7)
  1. VITAMIN AND MINERAL PRENATAL SUPPLEMENT W/ FOLIC ACID CAP [Concomitant]
  2. FERROUS SULFATE TAB [Concomitant]
  3. LACTATE RINGER [Concomitant]
  4. BETAMETHASONE [Suspect]
     Indication: MATERNAL THERAPY TO ENHANCE FOETAL LUNG MATURITY
     Dosage: 12 MG, ONCE, IM
     Route: 030
  5. AMPICILLIN [Concomitant]
  6. RANITIDINE [Concomitant]
  7. ERYTHROMYCIN [Concomitant]

REACTIONS (9)
  - ANAEMIA [None]
  - CAESAREAN SECTION [None]
  - GAIT DISTURBANCE [None]
  - PARALYSIS [None]
  - PREMATURE LABOUR [None]
  - DRUG EXPOSURE DURING PREGNANCY [None]
  - HYPOKALAEMIA [None]
  - BLOOD MAGNESIUM DECREASED [None]
  - MUSCULAR WEAKNESS [None]
